FAERS Safety Report 9850913 (Version 1)
Quarter: 2014Q1

REPORT INFORMATION
  Report Type: Spontaneous
  Country: GB (occurrence: None)
  Receive Date: 20140124
  Receipt Date: 20140124
  Transmission Date: 20141002
  Serious: Yes (Life-Threatening, Hospitalization, Disabling, Other)
  Sender: FDA-Public Use
  Company Number: AUR-APL-2014-00590

PATIENT
  Age: 24 Year
  Sex: Male
  Weight: 107.9 kg

DRUGS (1)
  1. QUETIAPINE (QUETIAPINE) [Suspect]
     Indication: PRODUCT USED FOR UNKNOWN INDICATION
     Dosage: (750 MG), ORAL
     Route: 048

REACTIONS (10)
  - Prescribed overdose [None]
  - Metabolic syndrome [None]
  - Diabetes mellitus [None]
  - Sleep apnoea syndrome [None]
  - Tardive dyskinesia [None]
  - Weight increased [None]
  - Dyspnoea [None]
  - Glassy eyes [None]
  - Pallor [None]
  - Medication error [None]
